FAERS Safety Report 13278394 (Version 2)
Quarter: 2017Q1

REPORT INFORMATION
  Report Type: Report from Study
  Country: US (occurrence: US)
  Receive Date: 20170228
  Receipt Date: 20170308
  Transmission Date: 20170428
  Serious: Yes (Death)
  Sender: FDA-Public Use
  Company Number: US-EXELIXIS-CABO-17008374

PATIENT
  Age: 57 Year
  Sex: Male

DRUGS (11)
  1. CARVEDILOL. [Concomitant]
     Active Substance: CARVEDILOL
  2. PRAVASTATIN. [Concomitant]
     Active Substance: PRAVASTATIN
  3. CABOMETYX [Suspect]
     Active Substance: CABOZANTINIB S-MALATE
     Indication: RENAL CANCER
     Dosage: 20 MG, QD
     Route: 048
     Dates: start: 20161005
  4. ASPIRIN. [Concomitant]
     Active Substance: ASPIRIN
  5. SIROLIMUS. [Concomitant]
     Active Substance: SIROLIMUS
  6. CABOMETYX [Suspect]
     Active Substance: CABOZANTINIB S-MALATE
     Indication: NEOPLASM MALIGNANT
  7. SODIUM BICARBONATE. [Concomitant]
     Active Substance: SODIUM BICARBONATE
  8. URSODIOL. [Concomitant]
     Active Substance: URSODIOL
  9. CLONIDINE. [Concomitant]
     Active Substance: CLONIDINE
  10. VALSARTAN. [Concomitant]
     Active Substance: VALSARTAN
  11. PREDNISOLONE. [Concomitant]
     Active Substance: PREDNISOLONE

REACTIONS (2)
  - Malignant neoplasm progression [Fatal]
  - Respiratory distress [Fatal]

NARRATIVE: CASE EVENT DATE: 201702
